FAERS Safety Report 19702605 (Version 2)
Quarter: 2021Q3

REPORT INFORMATION
  Report Type: Spontaneous
  Country: JP (occurrence: JP)
  Receive Date: 20210815
  Receipt Date: 20210831
  Transmission Date: 20211014
  Serious: Yes (Other)
  Sender: FDA-Public Use
  Company Number: JP-AMGEN-JPNSP2021124986

PATIENT
  Age: 90 Year
  Sex: Male

DRUGS (1)
  1. NESP [Suspect]
     Active Substance: DARBEPOETIN ALFA
     Indication: NEPHROGENIC ANAEMIA
     Dosage: 30 MICROGRAM, Q2WK
     Route: 058
     Dates: start: 20210414, end: 202106

REACTIONS (2)
  - Vitreous floaters [Recovered/Resolved]
  - Retinopathy [Recovered/Resolved]

NARRATIVE: CASE EVENT DATE: 202105
